FAERS Safety Report 4685935-7 (Version None)
Quarter: 2005Q2

REPORT INFORMATION
  Report Type: 
  Country: None (occurrence: None)
  Receive Date: 20050606
  Receipt Date: 20050606
  Transmission Date: 20051028
  Serious: Yes (Other)
  Sender: FDA-Public Use
  Company Number: None

PATIENT
  Sex: Female
  Weight: 60.45 kg

DRUGS (3)
  1. PACLITAXEL 175 MG/M2 OVER 3 HOURS EVERY 14 DAYS TIMES 6 CYCLES [Suspect]
     Indication: BREAST CANCER
     Dosage: 175 MG/M2 OVER 3 HOURS EVERY 14 DAYS TIMES 6 CYCLES
     Route: 042
     Dates: start: 20050302
  2. DECADRON [Concomitant]
  3. NEULASTA [Concomitant]

REACTIONS (3)
  - DIARRHOEA [None]
  - PYREXIA [None]
  - WHITE BLOOD CELL COUNT INCREASED [None]
